FAERS Safety Report 7040351-8 (Version None)
Quarter: 2010Q4

REPORT INFORMATION
  Report Type: 
  Country: None (occurrence: None)
  Receive Date: 20101012
  Receipt Date: 20101006
  Transmission Date: 20110411
  Serious: Yes (Hospitalization)
  Sender: FDA-Public Use
  Company Number: CA-B.I. PHARMACEUTICALS,INC./RIDGEFIELD-2010-CN-00640CN

PATIENT
  Sex: Male

DRUGS (4)
  1. FLOMAX [Suspect]
     Indication: BENIGN PROSTATIC HYPERPLASIA
     Route: 048
     Dates: start: 20100101, end: 20101007
  2. PROSCAR [Concomitant]
  3. ACCURETIC [Concomitant]
  4. LIPITOR [Concomitant]

REACTIONS (7)
  - HIP SURGERY [None]
  - OEDEMA PERIPHERAL [None]
  - PRURITUS [None]
  - RASH [None]
  - RECTAL DISCHARGE [None]
  - SCROTAL SWELLING [None]
  - URINARY RETENTION [None]
